FAERS Safety Report 9514120 (Version 1)
Quarter: 2013Q3

REPORT INFORMATION
  Report Type: Spontaneous
  Country: DE (occurrence: DE)
  Receive Date: 20130910
  Receipt Date: 20130910
  Transmission Date: 20140515
  Serious: Yes (Other)
  Sender: FDA-Public Use
  Company Number: DE-WATSON-2013-16395

PATIENT
  Age: 78 Year
  Sex: Male

DRUGS (11)
  1. IBUPROFEN (UNKNOWN) [Suspect]
     Indication: NEURALGIA
     Dosage: 800 - 1 DF/DAY
     Route: 065
     Dates: start: 2007, end: 2012
  2. ALLOPURINOL (UNKNOWN) [Suspect]
     Indication: PRODUCT USED FOR UNKNOWN INDICATION
     Dosage: 100 - 1 DF/DAY
     Route: 065
     Dates: start: 2003, end: 2012
  3. ALFUZOSIN [Suspect]
     Indication: PROSTATIC ADENOMA
     Dosage: 10 MG, DAILY
     Route: 065
     Dates: start: 2003, end: 2013
  4. CODIOVAN [Suspect]
     Indication: HYPERTENSION
     Dosage: 160/12.5 - 1 DF/DAY
     Route: 065
     Dates: start: 2003, end: 2013
  5. ATENOLOL [Concomitant]
     Indication: HYPERTENSION
     Dosage: 50 - 1 DF/DAY
     Route: 065
     Dates: start: 2003, end: 2013
  6. METFORMIN [Concomitant]
     Indication: TYPE 2 DIABETES MELLITUS
     Dosage: 1000 - 1 DF/DAY
     Route: 065
     Dates: start: 2003, end: 2013
  7. JANUMET [Concomitant]
     Indication: TYPE 2 DIABETES MELLITUS
     Dosage: 50/1000 - 1 DF/DAY
     Route: 065
     Dates: start: 2003, end: 2013
  8. PALEXIA [Concomitant]
     Indication: NEURALGIA
     Dosage: 50 RETARD - 1 DF/DAY
     Route: 065
     Dates: start: 2009, end: 2012
  9. ARCOXIA [Concomitant]
     Indication: NEURALGIA
     Dosage: 120 - 1 DF/DAY
     Route: 065
     Dates: start: 2011, end: 2011
  10. DOXYCYCLINE [Concomitant]
     Indication: INFECTION
     Dosage: 100/200 - 1 DF/DAY
     Route: 065
     Dates: start: 2011, end: 2012
  11. TRAMADOL [Concomitant]
     Indication: PROCEDURAL PAIN
     Dosage: LONG 100 - 1 DF/DAY
     Route: 065
     Dates: start: 2009, end: 2011

REACTIONS (3)
  - Anaemia [Unknown]
  - Pancytopenia [Unknown]
  - Renal impairment [Unknown]
